FAERS Safety Report 24132984 (Version 1)
Quarter: 2024Q3

REPORT INFORMATION
  Report Type: Other
  Country: GB (occurrence: GB)
  Receive Date: 20240724
  Receipt Date: 20240724
  Transmission Date: 20241017
  Serious: Yes (Disabling, Other)
  Sender: GLENMARK
  Company Number: None

PATIENT

DRUGS (4)
  1. ROSUVASTATIN CALCIUM [Suspect]
     Active Substance: ROSUVASTATIN CALCIUM
     Indication: Prophylaxis
     Dosage: 5 MILLIGRAM QD (5MG DAILY)
     Route: 065
     Dates: start: 20231212, end: 20240510
  2. ATORVASTATIN [Suspect]
     Active Substance: ATORVASTATIN
     Indication: Prophylaxis
     Dosage: 10 MILLIGRAM, OD, 10MG ONCE DAILY
     Route: 065
     Dates: start: 20220323, end: 20231212
  3. AMLODIPINE [Concomitant]
     Active Substance: AMLODIPINE BESYLATE
     Indication: Product used for unknown indication
     Dosage: UNK
     Route: 065
     Dates: start: 20201221, end: 20240709
  4. LORATADINE [Concomitant]
     Active Substance: LORATADINE
     Indication: Product used for unknown indication
     Dosage: UNK
     Route: 065
     Dates: start: 20200501

REACTIONS (3)
  - Myasthenia gravis [Recovered/Resolved]
  - Muscle twitching [Recovered/Resolved]
  - Myalgia [Recovered/Resolved]

NARRATIVE: CASE EVENT DATE: 20231201
